FAERS Safety Report 5230407-4 (Version None)
Quarter: 2007Q1

REPORT INFORMATION
  Report Type: 
  Country: None (occurrence: None)
  Receive Date: 20070206
  Receipt Date: 20070126
  Transmission Date: 20070707
  Serious: Yes (Disabling)
  Sender: FDA-Public Use
  Company Number: PHBS2006JP15756

PATIENT
  Age: 33 Year
  Sex: Male
  Weight: 64 kg

DRUGS (3)
  1. LAMISIL [Suspect]
     Indication: NAIL TINEA
     Dosage: 125 MG/D
     Route: 048
     Dates: start: 20060907, end: 20061004
  2. LAMISIL [Suspect]
     Dosage: 125 MG/DAY
     Dates: start: 20061114
  3. ALLEGRA [Concomitant]
     Indication: ECZEMA
     Dosage: 120 MG/D
     Route: 048
     Dates: start: 20060824

REACTIONS (4)
  - ASPARTATE AMINOTRANSFERASE INCREASED [None]
  - BLOOD CREATINE PHOSPHOKINASE INCREASED [None]
  - BLOOD LACTATE DEHYDROGENASE INCREASED [None]
  - MUSCLE INJURY [None]
